FAERS Safety Report 19950330 (Version 2)
Quarter: 2023Q4

REPORT INFORMATION
  Report Type: Spontaneous
  Country: US (occurrence: US)
  Receive Date: 20211013
  Receipt Date: 20231027
  Transmission Date: 20240110
  Serious: No
  Sender: FDA-Public Use
  Company Number: US-AVEO ONCOLOGY-2021-AVEO-US003491

PATIENT

DRUGS (20)
  1. FOTIVDA [Suspect]
     Active Substance: TIVOZANIB HYDROCHLORIDE
     Indication: Renal cell carcinoma
     Dosage: 1.34 MG, DAILY FOR 21 DAYS THEN 7 DAYS OFF
     Route: 048
     Dates: start: 20210708, end: 20210731
  2. FOTIVDA [Suspect]
     Active Substance: TIVOZANIB HYDROCHLORIDE
     Dosage: 0.89 MG, DAILY FOR 21 DAYS THEN 7 DAYS OFF
     Dates: start: 20210809
  3. AFRIN [Concomitant]
     Active Substance: OXYMETAZOLINE
  4. CALCIUM [Concomitant]
     Active Substance: CALCIUM
  5. VITAMINS [Concomitant]
     Active Substance: VITAMINS
  6. CLOBETASOL [Concomitant]
     Active Substance: CLOBETASOL
  7. BETAMETHASONE DIPROPIONATE\CALCIPOTRIENE [Concomitant]
     Active Substance: BETAMETHASONE DIPROPIONATE\CALCIPOTRIENE
  8. DRONABINOL [Concomitant]
     Active Substance: DRONABINOL
  9. EZETIMIBE [Concomitant]
     Active Substance: EZETIMIBE
  10. HYDROCORTISONE [Concomitant]
     Active Substance: HYDROCORTISONE
  11. LEVOTHYROXINE [Concomitant]
     Active Substance: LEVOTHYROXINE
  12. IBUPROFEN [Concomitant]
     Active Substance: IBUPROFEN
  13. MUPIROCIN [Concomitant]
     Active Substance: MUPIROCIN
  14. NYSTATIN [Concomitant]
     Active Substance: NYSTATIN
  15. OMEPRAZOLE [Concomitant]
     Active Substance: OMEPRAZOLE
  16. POTASSIUM [Concomitant]
     Active Substance: POTASSIUM
  17. ROPINIROLE [Concomitant]
     Active Substance: ROPINIROLE
  18. ROSUVASTATIN [Concomitant]
     Active Substance: ROSUVASTATIN
  19. VENTOLIN [Concomitant]
     Active Substance: ALBUTEROL SULFATE
  20. VITAMIN B COMPLEX [Concomitant]
     Active Substance: CYANOCOBALAMIN\DEXPANTHENOL\NIACINAMIDE\PYRIDOXINE HYDROCHLORIDE\RIBOFLAVIN 5^-PHOSPHATE SODIUM\THIA

REACTIONS (1)
  - Drug-induced liver injury [Unknown]
